FAERS Safety Report 10485502 (Version 2)
Quarter: 2015Q2

REPORT INFORMATION
  Report Type: Spontaneous
  Country: US (occurrence: US)
  Receive Date: 20140930
  Receipt Date: 20150410
  Transmission Date: 20150821
  Serious: No
  Sender: FDA-Public Use
  Company Number: US-TEVA-510572USA

PATIENT
  Sex: Female

DRUGS (1)
  1. COPAXONE [Suspect]
     Active Substance: GLATIRAMER ACETATE
     Indication: MULTIPLE SCLEROSIS
     Dates: start: 20120716

REACTIONS (5)
  - Injection site pain [Unknown]
  - Arthropathy [Recovered/Resolved]
  - Depression [Unknown]
  - Injection site mass [Unknown]
  - Osteoporosis [Unknown]
